FAERS Safety Report 5592001-5 (Version None)
Quarter: 2008Q1

REPORT INFORMATION
  Report Type: 
  Country: None (occurrence: None)
  Receive Date: 20080115
  Receipt Date: 20080108
  Transmission Date: 20080703
  Serious: Yes (Hospitalization)
  Sender: FDA-Public Use
  Company Number: FR-ASTRAZENECA-2008CG00045

PATIENT
  Age: 17928 Day
  Sex: Female

DRUGS (14)
  1. ENTOCORT EC [Suspect]
     Indication: COLITIS ULCERATIVE
     Route: 048
     Dates: start: 20070226, end: 20070704
  2. REMICADE [Suspect]
     Indication: COLITIS ULCERATIVE
     Route: 042
     Dates: start: 20070115, end: 20070115
  3. REMICADE [Suspect]
     Route: 042
     Dates: start: 20070130, end: 20070130
  4. REMICADE [Suspect]
     Route: 042
     Dates: start: 20070226, end: 20070226
  5. REMICADE [Suspect]
     Route: 042
     Dates: start: 20070423, end: 20070423
  6. REMICADE [Suspect]
     Route: 042
     Dates: start: 20070504, end: 20070504
  7. HYDROCORTISONE [Suspect]
     Indication: COLITIS ULCERATIVE
     Route: 042
     Dates: start: 20070115, end: 20070115
  8. HYDROCORTISONE [Suspect]
     Route: 042
     Dates: start: 20070130, end: 20070130
  9. HYDROCORTISONE [Suspect]
     Route: 042
     Dates: start: 20070226, end: 20070226
  10. HYDROCORTISONE [Suspect]
     Route: 042
     Dates: start: 20070423, end: 20070423
  11. HYDROCORTISONE [Suspect]
     Route: 042
     Dates: start: 20070504, end: 20070504
  12. IMUREL [Suspect]
     Indication: COLITIS ULCERATIVE
     Route: 048
     Dates: start: 20060901, end: 20060101
  13. SOLUPRED [Suspect]
     Indication: COLITIS ULCERATIVE
     Route: 048
     Dates: start: 20070226
  14. FIVASA [Concomitant]
     Indication: COLITIS ULCERATIVE
     Route: 048

REACTIONS (1)
  - LUNG ADENOCARCINOMA [None]
